FAERS Safety Report 8403341-6 (Version None)
Quarter: 2012Q2

REPORT INFORMATION
  Report Type: 
  Country: None (occurrence: None)
  Receive Date: 20120601
  Receipt Date: 20120529
  Transmission Date: 20120825
  Serious: Yes (Hospitalization)
  Sender: FDA-Public Use
  Company Number: US-CELGENEUS-163-21880-12031865

PATIENT
  Sex: Male

DRUGS (7)
  1. ACIPHEX [Concomitant]
     Route: 065
  2. ASPIRIN [Concomitant]
     Indication: PROPHYLAXIS
     Route: 065
  3. BACTRIM [Concomitant]
     Indication: PROPHYLAXIS
     Route: 065
  4. REVLIMID [Suspect]
     Indication: MULTIPLE MYELOMA
     Dosage: 25 MILLIGRAM
     Route: 048
     Dates: start: 20110501
  5. SYNTHROID [Concomitant]
     Indication: HYPOTHYROIDISM
     Route: 065
  6. REVLIMID [Suspect]
     Dosage: 25 MILLIGRAM
     Route: 048
     Dates: start: 20111001
  7. VALTREX [Concomitant]
     Route: 065

REACTIONS (2)
  - DIVERTICULAR PERFORATION [None]
  - IMPAIRED HEALING [None]
